FAERS Safety Report 11748489 (Version 2)
Quarter: 2015Q4

REPORT INFORMATION
  Report Type: Spontaneous
  Country: GB (occurrence: GB)
  Receive Date: 20151117
  Receipt Date: 20151120
  Transmission Date: 20160304
  Serious: Yes (Death)
  Sender: FDA-Public Use
  Company Number: GB-RARE DISEASE THERAPEUTICS, INC.-1044342

PATIENT
  Age: 75 Year
  Sex: Female

DRUGS (4)
  1. ETOPOSIDE. [Suspect]
     Active Substance: ETOPOSIDE
  2. DAUNORUBICIN HYDROCHLORIDE. [Suspect]
     Active Substance: DAUNORUBICIN HYDROCHLORIDE
  3. CYTARABINE. [Suspect]
     Active Substance: CYTARABINE
  4. PURIXAN [Suspect]
     Active Substance: MERCAPTOPURINE

REACTIONS (4)
  - Encephalopathy [Fatal]
  - Respiratory tract infection [Fatal]
  - Pulmonary cavitation [Fatal]
  - Off label use [Unknown]
